FAERS Safety Report 23496802 (Version 2)
Quarter: 2024Q4

REPORT INFORMATION
  Report Type: Spontaneous
  Country: US (occurrence: US)
  Receive Date: 20240207
  Receipt Date: 20241001
  Transmission Date: 20250115
  Serious: No
  Sender: ROCHE
  Company Number: US-ROCHE-3470969

PATIENT
  Age: 24 Year
  Sex: Female

DRUGS (2)
  1. XOLAIR [Suspect]
     Active Substance: OMALIZUMAB
     Indication: Idiopathic urticaria
     Route: 058
     Dates: start: 202311
  2. XOLAIR [Suspect]
     Active Substance: OMALIZUMAB
     Route: 058

REACTIONS (11)
  - Rash [Unknown]
  - Rhinorrhoea [Unknown]
  - Nausea [Unknown]
  - Sneezing [Unknown]
  - Throat irritation [Unknown]
  - Anxiety [Unknown]
  - Enlarged uvula [Unknown]
  - Asthenia [Unknown]
  - Paraesthesia [Unknown]
  - Eye paraesthesia [Unknown]
  - Nasal oedema [Unknown]

NARRATIVE: CASE EVENT DATE: 20240402
